FAERS Safety Report 21207985 (Version 1)
Quarter: 2022Q3

REPORT INFORMATION
  Report Type: Spontaneous
  Country: US (occurrence: None)
  Receive Date: 20220811
  Receipt Date: 20220811
  Transmission Date: 20221027
  Serious: Yes (Other)
  Sender: FDA-Public Use
  Company Number: None

PATIENT
  Age: 29 Year
  Sex: Female

DRUGS (1)
  1. LACOSAMIDE [Suspect]
     Active Substance: LACOSAMIDE
     Indication: Epilepsy
     Dosage: OTHER FREQUENCY : 2TABAM35TABPM ;?
     Route: 048

REACTIONS (5)
  - Body temperature increased [None]
  - Excessive eye blinking [None]
  - Lethargy [None]
  - Hypersomnia [None]
  - Product substitution issue [None]
